FAERS Safety Report 6745123-7 (Version None)
Quarter: 2010Q2

REPORT INFORMATION
  Report Type: 
  Country: None (occurrence: None)
  Receive Date: 20100526
  Receipt Date: 20100514
  Transmission Date: 20101027
  Serious: Yes (Hospitalization, Other)
  Sender: FDA-Public Use
  Company Number: 1-22206658

PATIENT
  Age: 20 Year
  Sex: Female
  Weight: 82.0103 kg

DRUGS (10)
  1. BACTRIM [Suspect]
  2. STUDY DRUG PF-02341066 [Suspect]
     Indication: NEUROBLASTOMA
     Dosage: 130 MG/M^2, TWICE DAILY, CONTINUOUSLY FOR 28 DAYS PER CYCLE, ORAL
     Route: 048
     Dates: start: 20091202, end: 20100312
  3. ATIVAN [Concomitant]
  4. BENADRYL [Concomitant]
  5. KEPPRA [Concomitant]
  6. MELATONIN [Concomitant]
  7. SYNTHROID [Concomitant]
  8. ZOLOFT [Concomitant]
  9. MORPHINE CONTROLLED RELEASE (CR) [Concomitant]
  10. MORPHINE IMMEDIATE RELEASE (IR) [Concomitant]

REACTIONS (13)
  - DIARRHOEA [None]
  - DIPLOPIA [None]
  - HAEMOGLOBIN INCREASED [None]
  - HEADACHE [None]
  - HYPOCALCAEMIA [None]
  - HYPONATRAEMIA [None]
  - HYPOTENSION [None]
  - HYPOTHYROIDISM [None]
  - LYMPHOPENIA [None]
  - NEUTROPENIA [None]
  - PHOTOPSIA [None]
  - PLATELET COUNT DECREASED [None]
  - PYREXIA [None]
